FAERS Safety Report 10432578 (Version 1)
Quarter: 2014Q3

REPORT INFORMATION
  Report Type: Spontaneous
  Country: US (occurrence: None)
  Receive Date: 20140904
  Receipt Date: 20140904
  Transmission Date: 20150326
  Serious: No
  Sender: FDA-Public Use
  Company Number: None

PATIENT
  Sex: Male

DRUGS (1)
  1. XANAX XR [Suspect]
     Active Substance: ALPRAZOLAM
     Indication: PANIC DISORDER WITH AGORAPHOBIA

REACTIONS (3)
  - Condition aggravated [None]
  - Drug ineffective [None]
  - Panic attack [None]
